FAERS Safety Report 10386844 (Version 4)
Quarter: 2015Q1

REPORT INFORMATION
  Report Type: Spontaneous
  Country: US (occurrence: US)
  Receive Date: 20140815
  Receipt Date: 20150126
  Transmission Date: 20150720
  Serious: No
  Sender: FDA-Public Use
  Company Number: US-ASTRAZENECA-2014SE56501

PATIENT
  Age: 29301 Day
  Sex: Female
  Weight: 54.4 kg

DRUGS (5)
  1. SYMBICORT [Suspect]
     Active Substance: BUDESONIDE\FORMOTEROL FUMARATE DIHYDRATE
     Indication: CHRONIC OBSTRUCTIVE PULMONARY DISEASE
     Dosage: 160 4.5 MCG 2 PUFFS BID
     Route: 055
     Dates: start: 20150106
  2. ARMOUR [Concomitant]
     Indication: THYROID DISORDER
  3. TYLENOL [Concomitant]
     Active Substance: ACETAMINOPHEN
  4. PULMICORT FLEXHALER [Suspect]
     Active Substance: BUDESONIDE
     Route: 055
     Dates: start: 1999
  5. SEREVENT [Suspect]
     Active Substance: SALMETEROL XINAFOATE
     Indication: CHRONIC OBSTRUCTIVE PULMONARY DISEASE
     Dosage: 25MCG 2 PUFF BID
     Route: 065

REACTIONS (15)
  - Obstructive airways disorder [Unknown]
  - Dysphonia [Not Recovered/Not Resolved]
  - Off label use [Unknown]
  - Dyspnoea [Unknown]
  - Nasopharyngitis [Unknown]
  - Bronchial hyperreactivity [Recovered/Resolved]
  - Forced vital capacity decreased [Not Recovered/Not Resolved]
  - Vision blurred [Unknown]
  - Drug dose omission [Unknown]
  - Headache [Unknown]
  - Bronchitis [Unknown]
  - Chronic obstructive pulmonary disease [Unknown]
  - Tremor [Unknown]
  - Chest discomfort [Recovered/Resolved]
  - Dysgeusia [Unknown]

NARRATIVE: CASE EVENT DATE: 20140804
